FAERS Safety Report 20818100 (Version 4)
Quarter: 2022Q4

REPORT INFORMATION
  Report Type: Report from Study
  Country: CA (occurrence: CA)
  Receive Date: 20220512
  Receipt Date: 20221015
  Transmission Date: 20230112
  Serious: Yes (Hospitalization, Other)
  Sender: FDA-Public Use
  Company Number: CA-TAKEDA-2021TUS052517

PATIENT
  Age: 59 Year
  Sex: Female

DRUGS (10)
  1. HUMAN IMMUNOGLOBULIN G [Suspect]
     Active Substance: HUMAN IMMUNOGLOBULIN G
     Indication: Autoimmune thyroiditis
     Dosage: 11 GRAM, 1/WEEK
     Route: 058
     Dates: start: 20210818
  2. HUMAN IMMUNOGLOBULIN G [Suspect]
     Active Substance: HUMAN IMMUNOGLOBULIN G
     Dosage: 11 GRAM, 1/WEEK
     Route: 058
     Dates: start: 20210818
  3. HUMAN IMMUNOGLOBULIN G [Suspect]
     Active Substance: HUMAN IMMUNOGLOBULIN G
     Dosage: 11 GRAM, 1/WEEK
     Route: 058
     Dates: start: 20210818
  4. VITAMIN D [Concomitant]
     Active Substance: VITAMIN D NOS
     Dosage: UNK
     Route: 065
  5. FAMOTIDINE [Concomitant]
     Active Substance: FAMOTIDINE
     Dosage: UNK
     Route: 065
  6. HYDROMORPHONE [Concomitant]
     Active Substance: HYDROMORPHONE
     Dosage: UNK
     Route: 065
  7. OMEPRAZOLE [Concomitant]
     Active Substance: OMEPRAZOLE
     Dosage: UNK
     Route: 065
  8. PREGABALIN [Concomitant]
     Active Substance: PREGABALIN
     Dosage: UNK
     Route: 065
  9. ASPIRIN [Concomitant]
     Active Substance: ASPIRIN
     Dosage: UNK
     Route: 065
  10. FENTANYL [Concomitant]
     Active Substance: FENTANYL
     Dosage: UNK
     Route: 065

REACTIONS (9)
  - Brain injury [Unknown]
  - Disability [Not Recovered/Not Resolved]
  - Fall [Unknown]
  - Nerve injury [Unknown]
  - Amnesia [Unknown]
  - Fatigue [Unknown]
  - Nervous system disorder [Not Recovered/Not Resolved]
  - Off label use [Unknown]
  - Product dose omission issue [Unknown]

NARRATIVE: CASE EVENT DATE: 20210818
